FAERS Safety Report 17107283 (Version 1)
Quarter: 2019Q4

REPORT INFORMATION
  Report Type: Spontaneous
  Country: DE (occurrence: DE)
  Receive Date: 20191203
  Receipt Date: 20191203
  Transmission Date: 20200122
  Serious: Yes (Other)
  Sender: FDA-Public Use
  Company Number: DE-MYLANLABS-2019M1116677

PATIENT
  Age: 70 Year
  Sex: Female

DRUGS (1)
  1. FORMATRIS 12 MIKROGRAMM NOVOLIZER [Suspect]
     Active Substance: FORMOTEROL FUMARATE
     Indication: PRODUCT USED FOR UNKNOWN INDICATION
     Dosage: UNK

REACTIONS (2)
  - Dystonia [Not Recovered/Not Resolved]
  - Muscle tightness [Not Recovered/Not Resolved]
